FAERS Safety Report 11092601 (Version 1)
Quarter: 2015Q2

REPORT INFORMATION
  Report Type: Spontaneous
  Country: GB (occurrence: None)
  Receive Date: 20150504
  Receipt Date: 20150504
  Transmission Date: 20150821
  Serious: Yes (Hospitalization)
  Sender: FDA-Public Use
  Company Number: SP09356

PATIENT
  Age: 42 Year
  Sex: Male

DRUGS (7)
  1. REBETOL [Suspect]
     Active Substance: RIBAVIRIN
     Dosage: 1000 MG  (1000 MG, 1 IN 1 D), ORAL
     Route: 048
  2. LACTULOSE. [Concomitant]
     Active Substance: LACTULOSE
  3. DACLATASVIR [Suspect]
     Active Substance: DACLATASVIR
     Dosage: 60 MG (60 MG, 1 IN 1 D), ORAL
     Route: 048
  4. MICROLAX [Concomitant]
  5. XIFAXAN [Suspect]
     Active Substance: RIFAXIMIN
     Indication: ENCEPHALOPATHY
     Dosage: 1100 MG (550 MG, 2 IN 1 D), ORAL
     Route: 048
  6. METHADONE [Concomitant]
     Active Substance: METHADONE HYDROCHLORIDE
  7. SOFOSBUVIR [Suspect]
     Active Substance: SOFOSBUVIR
     Dosage: 400 MG (400 MG, 1 IN 1 D), ORAL
     Route: 048

REACTIONS (1)
  - Cerebral haematoma [None]

NARRATIVE: CASE EVENT DATE: 20150408
